FAERS Safety Report 18689467 (Version 4)
Quarter: 2021Q1

REPORT INFORMATION
  Report Type: Spontaneous
  Country: NL (occurrence: NL)
  Receive Date: 20201231
  Receipt Date: 20210315
  Transmission Date: 20210419
  Serious: Yes (Life-Threatening, Hospitalization, Other)
  Sender: FDA-Public Use
  Company Number: NL-TEVA-2020-NL-1861622

PATIENT
  Age: 55 Year
  Sex: Male
  Weight: 85 kg

DRUGS (13)
  1. CYCLOPHOSPHAMIDE. [Suspect]
     Active Substance: CYCLOPHOSPHAMIDE
     Indication: GRANULOMATOSIS WITH POLYANGIITIS
     Dosage: 150 MILLIGRAM DAILY;
     Route: 065
  2. GENTAMYCIN [Concomitant]
     Active Substance: GENTAMICIN
     Indication: DRUG THERAPY
     Route: 041
  3. METRONIDAZOLE. [Suspect]
     Active Substance: METRONIDAZOLE
     Indication: DRUG THERAPY
     Dosage: 1500 MILLIGRAM DAILY;
     Route: 041
  4. HYDROCORTISONE. [Suspect]
     Active Substance: HYDROCORTISONE
     Indication: DISTRIBUTIVE SHOCK
     Dosage: 200 MILLIGRAM DAILY;
     Route: 041
  5. AZATHIOPRINE. [Suspect]
     Active Substance: AZATHIOPRINE
     Indication: GRANULOMATOSIS WITH POLYANGIITIS
     Dosage: 175 MILLIGRAM DAILY; MAINTENANCE THERAPY, ACTION TAKEN: INITIALLY WITHDRAWN, THEN RESTARTED AND AGAI
     Route: 065
  6. CEFTRIAXONE. [Concomitant]
     Active Substance: CEFTRIAXONE
     Indication: DRUG THERAPY
     Dosage: 4 GRAM DAILY;
     Route: 041
  7. CEFOTAXIME [Suspect]
     Active Substance: CEFOTAXIME SODIUM
     Indication: PRODUCT USED FOR UNKNOWN INDICATION
     Route: 065
  8. PREDNISONE. [Concomitant]
     Active Substance: PREDNISONE
     Route: 042
  9. PREDNISONE. [Concomitant]
     Active Substance: PREDNISONE
     Indication: PRODUCT USED FOR UNKNOWN INDICATION
     Route: 042
  10. COTRIMOXAZOLE [Concomitant]
     Active Substance: SULFAMETHOXAZOLE\TRIMETHOPRIM
     Indication: ANTIBIOTIC PROPHYLAXIS
     Route: 065
  11. AMOXICILLIN. [Suspect]
     Active Substance: AMOXICILLIN
     Indication: OTITIS MEDIA ACUTE
     Dosage: MAINTENANCE THERAPY
     Route: 065
  12. ERYTHROMYCIN. [Suspect]
     Active Substance: ERYTHROMYCIN
     Indication: ANTIBIOTIC PROPHYLAXIS
     Route: 065
  13. PREDNISONE. [Concomitant]
     Active Substance: PREDNISONE
     Indication: GRANULOMATOSIS WITH POLYANGIITIS
     Dosage: 12.5 MILLIGRAM DAILY;
     Route: 065

REACTIONS (8)
  - Stomatitis [Unknown]
  - Drug reaction with eosinophilia and systemic symptoms [Recovered/Resolved]
  - Distributive shock [Unknown]
  - Acute kidney injury [Unknown]
  - Rash erythematous [Recovered/Resolved]
  - Multiple organ dysfunction syndrome [Unknown]
  - Drug ineffective [Unknown]
  - Acute febrile neutrophilic dermatosis [Recovered/Resolved]
